FAERS Safety Report 5830674-X (Version None)
Quarter: 2008Q3

REPORT INFORMATION
  Report Type: 
  Country: None (occurrence: None)
  Receive Date: 20080801
  Receipt Date: 20071001
  Transmission Date: 20090109
  Serious: Yes (Other)
  Sender: FDA-Public Use
  Company Number: US-BRISTOL-MYERS SQUIBB COMPANY-13925300

PATIENT
  Age: 78 Year
  Sex: Male
  Weight: 68 kg

DRUGS (8)
  1. COUMADIN [Suspect]
     Indication: INTERNATIONAL NORMALISED RATIO FLUCTUATION
     Dosage: 7MG(AS 5MG1TAB AND 1MG2TABS)ON MON,WED AND FRI + 6MG(AS 5MG1TAB AND 1MG1TAB)FOR REMAINING 4 DAYS.
     Dates: start: 19930101
  2. ATENOLOL [Concomitant]
  3. DIGOXIN [Concomitant]
  4. ASPIRIN [Concomitant]
  5. HYDROCHLOROTHIAZIDE [Concomitant]
  6. LIPITOR [Concomitant]
  7. ZETIA [Concomitant]
  8. VITAMIN B-12 [Concomitant]

REACTIONS (1)
  - INTERNATIONAL NORMALISED RATIO FLUCTUATION [None]
